FAERS Safety Report 5809922-8 (Version None)
Quarter: 2008Q3

REPORT INFORMATION
  Report Type: 
  Country: None (occurrence: None)
  Receive Date: 20080714
  Receipt Date: 20080714
  Transmission Date: 20090109
  Serious: Yes (Other)
  Sender: FDA-Public Use
  Company Number: None

PATIENT
  Age: 52 Year
  Sex: Male
  Weight: 74.8435 kg

DRUGS (1)
  1. CIALIS [Suspect]
     Dosage: 10 MG ONCE PO
     Route: 048

REACTIONS (1)
  - ATRIAL FIBRILLATION [None]
